FAERS Safety Report 19972753 (Version 1)
Quarter: 2021Q4

REPORT INFORMATION
  Report Type: Spontaneous
  Country: US (occurrence: US)
  Receive Date: 20211019
  Receipt Date: 20211019
  Transmission Date: 20220303
  Serious: Yes (Other)
  Sender: FDA-Public Use
  Company Number: US-SEATTLE GENETICS-2021SGN05261

PATIENT
  Age: 63 Year
  Sex: Male

DRUGS (3)
  1. ADCETRIS [Suspect]
     Active Substance: BRENTUXIMAB VEDOTIN
     Indication: Hodgkin^s disease
     Dosage: 1.8 MG/KG, SINGLE
  2. DEXAMETHASONE [Concomitant]
     Active Substance: DEXAMETHASONE
     Dosage: 20 MG, QD
  3. ETOPOSIDE [Concomitant]
     Active Substance: ETOPOSIDE
     Dosage: 100 MG/ML, 2/WEEK

REACTIONS (2)
  - Renal failure [Unknown]
  - Lactic acidosis [Unknown]
